FAERS Safety Report 9589537 (Version 1)
Quarter: 2013Q4

REPORT INFORMATION
  Report Type: Spontaneous
  Country: US (occurrence: US)
  Receive Date: 20131003
  Receipt Date: 20131003
  Transmission Date: 20140711
  Serious: No
  Sender: FDA-Public Use
  Company Number: US-AMGEN-USASP2012070438

PATIENT
  Sex: Female

DRUGS (2)
  1. ENBREL [Suspect]
     Indication: RHEUMATOID ARTHRITIS
     Dosage: 50 MG, QWK
     Dates: start: 20030101
  2. METHOTREXATE [Concomitant]
     Dosage: 6 TABLETS, QWK
     Dates: start: 2003

REACTIONS (2)
  - Hypothyroidism [Not Recovered/Not Resolved]
  - Drug ineffective [Recovered/Resolved]
